FAERS Safety Report 16050269 (Version 1)
Quarter: 2019Q1

REPORT INFORMATION
  Report Type: Spontaneous
  Country: CA (occurrence: CA)
  Receive Date: 20190308
  Receipt Date: 20190308
  Transmission Date: 20190418
  Serious: Yes (Other)
  Sender: FDA-Public Use
  Company Number: CA-SA-2019SA059268

PATIENT
  Age: 69 Year
  Sex: Male

DRUGS (7)
  1. HYDROXYCHLOROQUINE [Suspect]
     Active Substance: HYDROXYCHLOROQUINE
     Indication: RHEUMATOID ARTHRITIS
  2. ORENCIA [Suspect]
     Active Substance: ABATACEPT
     Indication: RHEUMATOID ARTHRITIS
  3. METHOTREXATE. [Suspect]
     Active Substance: METHOTREXATE
     Route: 048
  4. SULFASALAZINE. [Suspect]
     Active Substance: SULFASALAZINE
     Indication: RHEUMATOID ARTHRITIS
  5. METHOTREXATE. [Suspect]
     Active Substance: METHOTREXATE
     Route: 013
  6. ARAVA [Suspect]
     Active Substance: LEFLUNOMIDE
     Indication: RHEUMATOID ARTHRITIS
  7. ACTEMRA [Suspect]
     Active Substance: TOCILIZUMAB
     Indication: RHEUMATOID ARTHRITIS

REACTIONS (11)
  - Thyroid cancer [Unknown]
  - Nodule [Unknown]
  - Nausea [Unknown]
  - Drug ineffective [Unknown]
  - Malaise [Unknown]
  - Limb discomfort [Unknown]
  - Eye disorder [Unknown]
  - Herpes zoster [Unknown]
  - Abdominal discomfort [Unknown]
  - Rectal haemorrhage [Unknown]
  - Osteoarthritis [Unknown]
